FAERS Safety Report 24217973 (Version 1)
Quarter: 2024Q3

REPORT INFORMATION
  Report Type: Spontaneous
  Country: US (occurrence: US)
  Receive Date: 20240816
  Receipt Date: 20240816
  Transmission Date: 20241016
  Serious: No
  Sender: BIOCON
  Company Number: US-MIMS-BCONMC-4650

PATIENT

DRUGS (1)
  1. SEMGLEE (INSULIN GLARGINE) [Suspect]
     Active Substance: INSULIN GLARGINE
     Indication: Product used for unknown indication
     Dosage: 40 UNITS/ML, QD AT NIGHT
     Route: 065

REACTIONS (3)
  - Device delivery system issue [Unknown]
  - Device mechanical issue [Unknown]
  - Product use issue [Unknown]
